FAERS Safety Report 14922733 (Version 1)
Quarter: 2018Q2

REPORT INFORMATION
  Report Type: Spontaneous
  Country: CN (occurrence: CN)
  Receive Date: 20180522
  Receipt Date: 20180522
  Transmission Date: 20180711
  Serious: Yes (Hospitalization, Other)
  Sender: FDA-Public Use
  Company Number: CN-ALEMBIC PHARMACUETICALS LIMITED-2018SCAL000347

PATIENT

DRUGS (4)
  1. LOSARTAN POTASSIUM. [Suspect]
     Active Substance: LOSARTAN POTASSIUM
     Indication: HYPERTENSION
     Dosage: 150 MILLIGRAM
  2. FELODIPINE. [Concomitant]
     Active Substance: FELODIPINE
     Indication: PRODUCT USED FOR UNKNOWN INDICATION
     Dosage: 5 MILLIGRAM
  3. HYDROCHLOROTHIAZIDE. [Concomitant]
     Active Substance: HYDROCHLOROTHIAZIDE
     Indication: PRODUCT USED FOR UNKNOWN INDICATION
     Dosage: 12.5 MILLIGRAM, QD
  4. ASPIRIN                            /00002701/ [Concomitant]
     Active Substance: ASPIRIN
     Indication: PRODUCT USED FOR UNKNOWN INDICATION
     Dosage: 100 MILLIGRAM

REACTIONS (12)
  - Blood creatinine increased [Recovering/Resolving]
  - Embolism arterial [Unknown]
  - Atrial fibrillation [Recovering/Resolving]
  - Bradycardia [Recovering/Resolving]
  - Chest discomfort [Recovering/Resolving]
  - Electrocardiogram P wave abnormal [Recovering/Resolving]
  - Renal impairment [Recovering/Resolving]
  - Decreased appetite [Recovering/Resolving]
  - Bundle branch block right [Recovering/Resolving]
  - Hyperkalaemia [Recovering/Resolving]
  - Electrocardiogram T wave amplitude increased [Recovering/Resolving]
  - Electrocardiogram QRS complex prolonged [Recovering/Resolving]
